FAERS Safety Report 11849301 (Version 1)
Quarter: 2015Q4

REPORT INFORMATION
  Report Type: Report from Study
  Country: US (occurrence: US)
  Receive Date: 20151218
  Receipt Date: 20151218
  Transmission Date: 20160305
  Serious: Yes (Hospitalization, Other)
  Sender: FDA-Public Use
  Company Number: US-PURDUE PHARMA-USA-2015-0127877

PATIENT
  Age: 62 Year
  Sex: Female

DRUGS (2)
  1. OXYCONTIN [Suspect]
     Active Substance: OXYCODONE HYDROCHLORIDE
     Dosage: UNK
     Route: 048
     Dates: start: 2009
  2. OXYCONTIN [Suspect]
     Active Substance: OXYCODONE HYDROCHLORIDE
     Indication: POST LAMINECTOMY SYNDROME
     Dosage: 60 MG, Q8H
     Route: 048
     Dates: start: 20151102

REACTIONS (4)
  - Post procedural complication [Unknown]
  - Spinal nerve stimulator implantation [Unknown]
  - Spinal laminectomy [Unknown]
  - Pain [Unknown]

NARRATIVE: CASE EVENT DATE: 20151116
